FAERS Safety Report 4429407-3 (Version None)
Quarter: 2004Q3

REPORT INFORMATION
  Report Type: 
  Country: None (occurrence: None)
  Receive Date: 20040816
  Receipt Date: 20040803
  Transmission Date: 20050211
  Serious: Yes (Hospitalization)
  Sender: FDA-Public Use
  Company Number: 2004053361

PATIENT
  Age: 30 Year
  Sex: Male

DRUGS (3)
  1. UNASYN [Suspect]
     Indication: CELLULITIS
     Dosage: 6 GRAM (1 GRAM, 6 IN 1 D), INTRAVENOUS
     Route: 042
     Dates: start: 20040629, end: 20040707
  2. METHYLPREDNISOLONE [Concomitant]
  3. HEPARIN-FRACTION, SODIUM SALT [Concomitant]

REACTIONS (1)
  - HEPATITIS [None]
